FAERS Safety Report 17744802 (Version 7)
Quarter: 2024Q3

REPORT INFORMATION
  Report Type: Spontaneous
  Country: US (occurrence: US)
  Receive Date: 20200505
  Receipt Date: 20240816
  Transmission Date: 20241017
  Serious: No
  Sender: PFIZER
  Company Number: US-PFIZER INC-2020177164

PATIENT
  Age: 71 Year
  Sex: Female
  Weight: 88 kg

DRUGS (1)
  1. XELJANZ XR [Suspect]
     Active Substance: TOFACITINIB CITRATE
     Indication: Rheumatoid arthritis
     Dosage: 11 MG, 1X/DAY, 11 MG TAKEN ONCE DAILY IN THE MORNING WITH GLASS OF WATER
     Route: 048
     Dates: start: 2012

REACTIONS (6)
  - Memory impairment [Not Recovered/Not Resolved]
  - Arthritis [Unknown]
  - Feeling abnormal [Unknown]
  - Ligament sprain [Unknown]
  - Joint swelling [Unknown]
  - Arthralgia [Unknown]
